FAERS Safety Report 8999423 (Version 1)
Quarter: 2013Q1

REPORT INFORMATION
  Report Type: Spontaneous
  Country: US (occurrence: US)
  Receive Date: 20130103
  Receipt Date: 20130103
  Transmission Date: 20140127
  Serious: No
  Sender: FDA-Public Use
  Company Number: US-ASTRAZENECA-2012SE95209

PATIENT
  Age: 70 Year
  Sex: Male

DRUGS (3)
  1. SEROQUEL [Suspect]
     Dosage: 50 MG IN EVENING
     Route: 048
  2. SEROQUEL [Suspect]
     Dosage: FOR 14 DAYS
     Route: 048
  3. SEROQUEL [Suspect]
     Route: 048
     Dates: start: 20121218

REACTIONS (4)
  - Musculoskeletal stiffness [Recovered/Resolved]
  - Muscle spasms [Unknown]
  - Extrapyramidal disorder [Unknown]
  - Drug effect delayed [Unknown]
